FAERS Safety Report 4320507-5 (Version None)
Quarter: 2004Q1

REPORT INFORMATION
  Report Type: 
  Country: None (occurrence: None)
  Receive Date: 20040319
  Receipt Date: 20040319
  Transmission Date: 20041129
  Serious: Yes (Hospitalization, Disabling)
  Sender: FDA-Public Use
  Company Number: None

PATIENT
  Sex: Female
  Weight: 52.6173 kg

DRUGS (10)
  1. OXALIPLATIN 100 MG VIAL SANOFI [Suspect]
     Indication: COLORECTAL CANCER STAGE III
     Dosage: 200 MG EVERY 14 D INTRAVENOUS
     Route: 042
     Dates: start: 20030910, end: 20040122
  2. LEUCOVORIN [Concomitant]
  3. 5-FU [Concomitant]
  4. OXALIPLATIN [Concomitant]
  5. PALONOSETRON [Concomitant]
  6. DIPHENHYDRAMINE HCL [Concomitant]
  7. DEXAMETHASONE [Concomitant]
  8. LORAZEPAM [Concomitant]
  9. TUSSIONEX [Concomitant]
  10. TYLENOL (CAPLET) [Concomitant]

REACTIONS (11)
  - CHEST PAIN [None]
  - CHILLS [None]
  - COUGH [None]
  - DRUG INEFFECTIVE [None]
  - DYSPNOEA [None]
  - HEART RATE INCREASED [None]
  - HYPOXIA [None]
  - LOBAR PNEUMONIA [None]
  - LUNG INFILTRATION [None]
  - PNEUMONITIS [None]
  - PYREXIA [None]
